FAERS Safety Report 20072704 (Version 1)
Quarter: 2021Q4

REPORT INFORMATION
  Report Type: Spontaneous
  Country: BE (occurrence: BE)
  Receive Date: 20211116
  Receipt Date: 20211116
  Transmission Date: 20220303
  Serious: Yes (Other)
  Sender: FDA-Public Use
  Company Number: BE-AUROBINDO-AUR-APL-2021-042237

PATIENT
  Age: 63 Year
  Weight: 75 kg

DRUGS (9)
  1. FLUCLOXACILLIN [Interacting]
     Active Substance: FLUCLOXACILLIN
     Indication: Antibiotic therapy
     Dosage: 2 GRAM(2 G, EVERY 4 HRS )
     Route: 042
  2. FLUCLOXACILLIN [Interacting]
     Active Substance: FLUCLOXACILLIN
     Indication: Staphylococcal infection
  3. VORICONAZOLE [Suspect]
     Active Substance: VORICONAZOLE
     Indication: Staphylococcal infection
     Dosage: 8 MILLIGRAM/KILOGRAM, ONCE A DAY
     Route: 042
  4. VORICONAZOLE [Suspect]
     Active Substance: VORICONAZOLE
     Indication: Aspergillus infection
     Dosage: 12 MILLIGRAM/KILOGRAM, ONCE A DAY(6 MG/KG EVERY 12 HOURS, DAY 7 )
     Route: 042
  5. ISAVUCONAZOLE [Interacting]
     Active Substance: ISAVUCONAZOLE
     Indication: Antibiotic therapy
     Dosage: 200 MILLIGRAM, 3 TIMES A DAY
     Route: 042
  6. ISAVUCONAZOLE [Interacting]
     Active Substance: ISAVUCONAZOLE
     Indication: Aspergillus infection
     Dosage: 200 MILLIGRAM, ONCE A DAY
     Route: 048
  7. ISAVUCONAZOLE [Interacting]
     Active Substance: ISAVUCONAZOLE
     Dosage: 200 MILLIGRAM, ONCE A DAY
     Route: 042
  8. PIPERACILLIN AND TAZOBACTAM [Concomitant]
     Active Substance: PIPERACILLIN SODIUM\TAZOBACTAM SODIUM
     Indication: Staphylococcal infection
     Dosage: UNK, FOUR TIMES/DAY, 4 G / 0.5 G
     Route: 065
  9. PIPERACILLIN AND TAZOBACTAM [Concomitant]
     Active Substance: PIPERACILLIN SODIUM\TAZOBACTAM SODIUM
     Indication: Cholangitis

REACTIONS (6)
  - Cholangitis [Unknown]
  - Pneumonia [Unknown]
  - Delirium [Unknown]
  - Drug interaction [Unknown]
  - Drug level below therapeutic [Unknown]
  - Liver function test increased [Unknown]
